FAERS Safety Report 5565383-8 (Version None)
Quarter: 2007Q4

REPORT INFORMATION
  Report Type: 
  Country: None (occurrence: None)
  Receive Date: 20071218
  Receipt Date: 20071204
  Transmission Date: 20080405
  Serious: Yes (Hospitalization, Disabling)
  Sender: FDA-Public Use
  Company Number: US-ELI_LILLY_AND_COMPANY-US200711004575

PATIENT
  Age: 80 Year
  Sex: Female
  Weight: 90.703 kg

DRUGS (4)
  1. CYMBALTA [Suspect]
     Indication: DIABETIC NEUROPATHY
     Dosage: 60 MG, EACH EVENING
  2. LANTUS [Concomitant]
  3. GLUCOPHAGE [Concomitant]
  4. RAMELTEON [Concomitant]

REACTIONS (3)
  - DRUG WITHDRAWAL SYNDROME [None]
  - PANIC ATTACK [None]
  - PSYCHOTIC DISORDER [None]
